FAERS Safety Report 17931036 (Version 2)
Quarter: 2020Q2

REPORT INFORMATION
  Report Type: Report from Study
  Country: BR (occurrence: BR)
  Receive Date: 20200623
  Receipt Date: 20200629
  Transmission Date: 20200714
  Serious: Yes (Other)
  Sender: FDA-Public Use
  Company Number: NVSC2020BR161580

PATIENT
  Age: 58 Year
  Sex: Female
  Weight: 99 kg

DRUGS (6)
  1. COSENTYX [Suspect]
     Active Substance: SECUKINUMAB
     Dosage: 300 MG(TWICE A MONTH)
     Route: 058
  2. GOLIMUMAB [Concomitant]
     Active Substance: GOLIMUMAB
     Indication: PRODUCT USED FOR UNKNOWN INDICATION
     Dosage: 50 MG, QMO(START DATE:STARTED AT 46 YEARS OLDFORMULATION:INJECTABLE)
     Route: 058
     Dates: end: 202004
  3. ATENOLOL. [Concomitant]
     Active Substance: ATENOLOL
     Indication: HYPERTENSION
     Dosage: 50 MG, BID(START DATE:5 MONTHS AGO)
     Route: 048
  4. COSENTYX [Suspect]
     Active Substance: SECUKINUMAB
     Indication: PSORIATIC ARTHROPATHY
     Dosage: 150 MG, QW
     Route: 065
     Dates: start: 20200417
  5. VENTENE [Concomitant]
     Indication: RHEUMATIC DISORDER
     Dosage: (FORMULATION:INJECTABLE,DOSE:AN INJECTION SPLITS IN TWO)UNK, QW
     Route: 058
     Dates: start: 202005
  6. LOSARTAN. [Concomitant]
     Active Substance: LOSARTAN
     Indication: HYPERTENSION
     Dosage: UNK, QD(START DATE:05 MONTHS AGO,DOSE:45MG+25MG)
     Route: 048

REACTIONS (9)
  - Skin wound [Recovering/Resolving]
  - Pruritus [Recovering/Resolving]
  - Inappropriate schedule of product administration [Unknown]
  - Incorrect dose administered [Recovered/Resolved]
  - Deafness [Recovering/Resolving]
  - Erythema [Recovering/Resolving]
  - Hypersensitivity [Recovering/Resolving]
  - Ear injury [Recovering/Resolving]
  - Skin infection [Recovering/Resolving]

NARRATIVE: CASE EVENT DATE: 20200417
